FAERS Safety Report 20831060 (Version 2)
Quarter: 2022Q2

REPORT INFORMATION
  Report Type: Spontaneous
  Country: US (occurrence: US)
  Receive Date: 20220515
  Receipt Date: 20220624
  Transmission Date: 20220721
  Serious: No
  Sender: FDA-Public Use
  Company Number: US-BRISTOL-MYERS SQUIBB COMPANY-2022-034932

PATIENT
  Sex: Male

DRUGS (2)
  1. REVLIMID [Suspect]
     Active Substance: LENALIDOMIDE
     Indication: Plasma cell myeloma
     Dosage: DOSE: 10 MILLIGRAM
     Route: 048
     Dates: start: 202203
  2. REVLIMID [Suspect]
     Active Substance: LENALIDOMIDE
     Dosage: FREQUENCY- 10MG* 14 DAYS EVERY 21.?REVLIMID WAS ON HOLD FROM 25-MAY-2022 TO 14-JUN-2022.
     Route: 048
     Dates: start: 20220314, end: 20220525

REACTIONS (2)
  - Product dose omission issue [Unknown]
  - Off label use [Unknown]
